FAERS Safety Report 20068176 (Version 1)
Quarter: 2021Q4

REPORT INFORMATION
  Report Type: Spontaneous
  Country: US (occurrence: None)
  Receive Date: 20211112
  Receipt Date: 20211112
  Transmission Date: 20220303
  Serious: Yes (Death, Hospitalization)
  Sender: FDA-Public Use
  Company Number: None

PATIENT
  Age: 74 Year
  Sex: Male
  Weight: 72 kg

DRUGS (1)
  1. WARFARIN SODIUM [Suspect]
     Active Substance: WARFARIN SODIUM
     Indication: Transient ischaemic attack
     Dosage: FREQUENCY : DAILY;?
     Route: 048
     Dates: start: 20090107, end: 20210923

REACTIONS (2)
  - Haemorrhage [None]
  - Subdural haematoma [None]

NARRATIVE: CASE EVENT DATE: 20210924
